FAERS Safety Report 5871539-7 (Version None)
Quarter: 2008Q3

REPORT INFORMATION
  Report Type: 
  Country: None (occurrence: None)
  Receive Date: 20080905
  Receipt Date: 20080408
  Transmission Date: 20090109
  Serious: No
  Sender: FDA-Public Use
  Company Number: A0721616A

PATIENT
  Age: 69 Year
  Sex: Male

DRUGS (12)
  1. REQUIP [Suspect]
     Indication: PARKINSON'S DISEASE
     Dosage: .25MG THREE TIMES PER DAY
     Route: 048
     Dates: start: 20080405
  2. BENICAR [Concomitant]
  3. NORVASC [Concomitant]
  4. LIPITOR [Concomitant]
  5. GLYCLAZIDE [Concomitant]
  6. METOPROLOL TARTRATE [Concomitant]
  7. FUROSEMIDE [Concomitant]
  8. VITAMIN D [Concomitant]
  9. JANUVIA [Concomitant]
  10. ASPIRIN [Concomitant]
  11. METAMUCIL [Concomitant]
  12. PEPCID [Concomitant]

REACTIONS (2)
  - DYSPEPSIA [None]
  - NAUSEA [None]
